FAERS Safety Report 7599113-5 (Version None)
Quarter: 2011Q3

REPORT INFORMATION
  Report Type: 
  Country: None (occurrence: None)
  Receive Date: 20110711
  Receipt Date: 20110624
  Transmission Date: 20111222
  Serious: Yes (Hospitalization, Other)
  Sender: FDA-Public Use
  Company Number: US-BAYER-2011-056858

PATIENT
  Sex: Female

DRUGS (20)
  1. XANAX [Concomitant]
  2. ACETAMINOPHEN AND HYDROCODONE BITARTRATE [Concomitant]
     Dosage: UNK
     Route: 048
     Dates: start: 20090429
  3. LEVOTHROID [Concomitant]
     Dosage: 100 ?G, UNK
     Route: 048
  4. OMEPRAZOLE [Concomitant]
     Dosage: 20 MG, UNK
     Route: 048
  5. FIORICET [Concomitant]
  6. LEVOTHROID [Concomitant]
     Indication: HYPOTHYROIDISM
     Dosage: 125 ?G, UNK
     Route: 048
     Dates: start: 20050921
  7. NORCO [Concomitant]
  8. PRILOSEC [Concomitant]
  9. IBUPROFEN [Concomitant]
  10. ROBXIN [Concomitant]
     Indication: MUSCLE RELAXANT THERAPY
  11. LEVOTHROID [Concomitant]
     Dosage: 75 ?G, QD
     Route: 048
  12. ACETAMINOPHEN W/ CODEINE [Concomitant]
     Indication: PAIN
     Dosage: UNK
     Dates: start: 20090423
  13. DROSPIRENONE AND ETHINYL ESTRADIOL [Suspect]
     Indication: ORAL CONTRACEPTION
     Dosage: UNK UNK, QD
     Dates: start: 20090101, end: 20090501
  14. LEVOTHROID [Concomitant]
     Dosage: 50 ?G, QD
     Route: 048
  15. CEPHALEXIN [Concomitant]
     Dosage: 500 MG, UNK
     Route: 048
     Dates: start: 20090429
  16. CYCLOBENZAPRINE [Concomitant]
     Indication: MUSCLE SPASMS
     Dosage: 10 MG, UNK
     Dates: start: 20090423
  17. LEVOTHYROXINE SODIUM [Concomitant]
  18. IMITREX [Concomitant]
  19. CITALOPRAM HYDROBROMIDE [Concomitant]
     Dosage: 20 MG, UNK
     Route: 048
  20. METHYLPREDNISOLONE [Concomitant]
     Dosage: 4 MG, UNK
     Route: 048
     Dates: start: 20090429

REACTIONS (5)
  - HEADACHE [None]
  - CEREBRAL THROMBOSIS [None]
  - PAIN [None]
  - PULMONARY EMBOLISM [None]
  - DEEP VEIN THROMBOSIS [None]
